FAERS Safety Report 9334036 (Version 2)
Quarter: 2013Q2

REPORT INFORMATION
  Report Type: Spontaneous
  Country: GB (occurrence: None)
  Receive Date: 20130604
  Receipt Date: 20130605
  Transmission Date: 20140414
  Serious: Yes (Disabling, Other)
  Sender: FDA-Public Use
  Company Number: AUR-APL-2013-04523

PATIENT
  Age: 56 Year
  Sex: Female
  Weight: 78 kg

DRUGS (4)
  1. LISINOPRIL (LISINOPRIL) [Suspect]
     Indication: HYPERTENSION
     Route: 048
     Dates: start: 2009, end: 20120930
  2. OMEPRAZOLE (OMEPRAZOLE) [Suspect]
     Indication: GASTROOESOPHAGEAL REFLUX DISEASE
     Route: 048
     Dates: start: 2010, end: 20120930
  3. LEVOTHYROXINE (LEVOTHYROXINE) [Suspect]
     Indication: PRODUCT USED FOR UNKNOWN INDICATION
  4. VITAMIN D [Concomitant]

REACTIONS (4)
  - Muscular weakness [None]
  - Dyspnoea [None]
  - Arthralgia [None]
  - Drug interaction [None]
